FAERS Safety Report 20887611 (Version 1)
Quarter: 2022Q2

REPORT INFORMATION
  Report Type: Spontaneous
  Country: US (occurrence: US)
  Receive Date: 20220528
  Receipt Date: 20220528
  Transmission Date: 20220721
  Serious: No
  Sender: FDA-Public Use
  Company Number: US-ARBOR PHARMACEUTICALS, LLC-US-2021ARB000850

PATIENT
  Sex: Female

DRUGS (2)
  1. HORIZANT [Suspect]
     Active Substance: GABAPENTIN ENACARBIL
     Indication: Restless legs syndrome
     Dosage: 300 MG, UNK
     Route: 065
  2. GABAPENTIN [Concomitant]
     Active Substance: GABAPENTIN
     Indication: Restless legs syndrome

REACTIONS (3)
  - Drug ineffective [Unknown]
  - Insomnia [Unknown]
  - Prescription drug used without a prescription [Unknown]
